FAERS Safety Report 11840266 (Version 1)
Quarter: 2015Q4

REPORT INFORMATION
  Report Type: Spontaneous
  Country: US (occurrence: None)
  Receive Date: 20151215
  Receipt Date: 20151215
  Transmission Date: 20160305
  Serious: Yes (Disabling)
  Sender: FDA-Public Use
  Company Number: None

PATIENT
  Age: 64 Year
  Sex: Female
  Weight: 72.58 kg

DRUGS (8)
  1. VITAMIN C [Concomitant]
     Active Substance: ASCORBIC ACID
  2. COENZYME Q10 [Concomitant]
     Active Substance: UBIDECARENONE
  3. SUMATRIPTAN. [Concomitant]
     Active Substance: SUMATRIPTAN
  4. VITAMIN B COMPLEX [Concomitant]
     Active Substance: CYANOCOBALAMIN\DEXPANTHENOL\NIACINAMIDE\PYRIDOXINE HYDROCHLORIDE\RIBOFLAVIN 5^-PHOSPHATE SODIUM\THIAMINE HYDROCHLORIDE\VITAMIN B COMPLEX
  5. OMEGA3 FATTY ACID/FISH OIL [Concomitant]
  6. DULOXETINE. [Suspect]
     Active Substance: DULOXETINE
     Indication: ANXIETY
     Route: 048
     Dates: start: 20151106, end: 20151119
  7. VITAMIN D3 [Concomitant]
     Active Substance: CHOLECALCIFEROL
  8. WELLBUTRIN [Concomitant]
     Active Substance: BUPROPION HYDROCHLORIDE

REACTIONS (13)
  - Fatigue [None]
  - Dizziness [None]
  - Drug withdrawal syndrome [None]
  - Nausea [None]
  - Balance disorder [None]
  - Thyroid disorder [None]
  - Platelet count decreased [None]
  - Feeling abnormal [None]
  - Impaired work ability [None]
  - Diabetes mellitus [None]
  - Feeling of body temperature change [None]
  - Emotional disorder [None]
  - White blood cell count decreased [None]

NARRATIVE: CASE EVENT DATE: 20151120
